FAERS Safety Report 16231143 (Version 3)
Quarter: 2019Q2

REPORT INFORMATION
  Report Type: Spontaneous
  Country: GB (occurrence: GB)
  Receive Date: 20190424
  Receipt Date: 20190510
  Transmission Date: 20190711
  Serious: Yes (Hospitalization)
  Sender: FDA-Public Use
  Company Number: GB-SA-2019SA112035

PATIENT
  Age: 90 Year
  Sex: Female

DRUGS (6)
  1. HYDROXOCOBALAMIN [Concomitant]
     Active Substance: HYDROXOCOBALAMIN
     Dosage: 1MG/1ML
     Route: 030
  2. MEMANTINE. [Concomitant]
     Active Substance: MEMANTINE
     Dosage: 10 MG, QD
     Route: 048
  3. CASSIA FISTULA/SENNA [Suspect]
     Active Substance: HERBALS\SENNOSIDES
     Dosage: 15 MG, HS, NIGHT
     Route: 048
  4. DOCUSATE CALCIUM. [Suspect]
     Active Substance: DOCUSATE CALCIUM
     Dosage: 400 MG, QD
     Route: 048
  5. FOLIC ACID. [Concomitant]
     Active Substance: FOLIC ACID
     Dosage: 5 MG, QD
     Route: 048
  6. CALCIUM 600+D [CALCIUM;COLECALCIFEROL] [Concomitant]
     Dosage: COLECALCIFEROL 200UNIT / CALCIUM CARBONATE 750MG
     Route: 048

REACTIONS (2)
  - Diarrhoea [Recovered/Resolved]
  - Dehydration [Recovered/Resolved]

NARRATIVE: CASE EVENT DATE: 20190209
